FAERS Safety Report 17545595 (Version 1)
Quarter: 2020Q1

REPORT INFORMATION
  Report Type: Spontaneous
  Country: US (occurrence: US)
  Receive Date: 20200315
  Receipt Date: 20200315
  Transmission Date: 20200409
  Serious: Yes (Other)
  Sender: FDA-Public Use
  Company Number: None

PATIENT
  Age: 67 Year
  Sex: Male
  Weight: 67.5 kg

DRUGS (28)
  1. OMEGA-3 FISH OIL [Concomitant]
     Active Substance: FISH OIL\OMEGA-3 FATTY ACIDS
  2. VITAMIN D3 [Concomitant]
     Active Substance: CHOLECALCIFEROL
  3. VITAMIN D3 [Concomitant]
     Active Substance: CHOLECALCIFEROL
  4. ASPIRIN. [Concomitant]
     Active Substance: ASPIRIN
  5. CYTOZYME-AD [Concomitant]
  6. LUTEIN [Concomitant]
     Active Substance: LUTEIN
  7. MAGNESIUM [Concomitant]
     Active Substance: MAGNESIUM
  8. SODIUM CHLORIDE 5% (MURO) [Concomitant]
  9. AI/MG HYDROXIDE (GAVISCON) [Concomitant]
  10. VITAMIN C [Concomitant]
     Active Substance: ASCORBIC ACID
  11. MAGMIND OR MAGTEIN (MG L-THREONATE) [Concomitant]
  12. CALCIUM (CITRATE)/VITAMIN D-3 [Concomitant]
  13. TURMERIC - FERMENTED [Concomitant]
  14. LEVOTHYROXINE. [Concomitant]
     Active Substance: LEVOTHYROXINE
  15. PANTETHINE [Concomitant]
     Active Substance: PANTETHINE
  16. VITAMIN B6 [Concomitant]
     Active Substance: PYRIDOXINE HYDROCHLORIDE
  17. TESTOSTERONE TOPICAL CREAM [Concomitant]
  18. MULTI-VITAMIN [Concomitant]
     Active Substance: .ALPHA.-TOCOPHEROL ACETATE, DL-\ASCORBIC ACID\CYANOCOBALAMIN\FLUORIDE ION\FOLIC ACID\NIACIN\PYRIDOXINE\RIBOFLAVIN\THIAMINE\VITAMIN A\VITAMIN D
  19. NIACIN (NO-FLUSH) [Concomitant]
  20. GENTEAL TEARS (MILD) [Concomitant]
     Active Substance: DEXTRAN 70\HYPROMELLOSE 2910 (4000 MPA.S)
  21. TESTOSTERONE GEL [Suspect]
     Active Substance: TESTOSTERONE
     Indication: TESTICULAR FAILURE
     Dosage: ?          QUANTITY:5 GRAMS;?
     Route: 061
     Dates: start: 20191031, end: 20200218
  22. ATENOLOL. [Concomitant]
     Active Substance: ATENOLOL
  23. VIT D [Concomitant]
     Active Substance: VITAMIN D NOS
  24. ZEAXANTHIN [Concomitant]
     Active Substance: ZEAXANTHIN
  25. L-CARNITINE [Concomitant]
     Active Substance: LEVOCARNITINE
  26. DESOXIMETASONE CREAM (TOPICORT) [Concomitant]
  27. ROGAINE FOAM (MINOXIDIL 5%) [Concomitant]
  28. ARMOUR THYROID [Concomitant]
     Active Substance: THYROID, PORCINE

REACTIONS (3)
  - Blood testosterone decreased [None]
  - Drug ineffective [None]
  - Blood testosterone free decreased [None]

NARRATIVE: CASE EVENT DATE: 20200212
